FAERS Safety Report 23701020 (Version 5)
Quarter: 2024Q2

REPORT INFORMATION
  Report Type: Spontaneous
  Country: US (occurrence: US)
  Receive Date: 20240403
  Receipt Date: 20240422
  Transmission Date: 20240716
  Serious: Yes (Death, Hospitalization, Other)
  Sender: FDA-Public Use
  Company Number: US-002147023-NVSC2024US071166

PATIENT
  Age: 74 Year
  Sex: Male
  Weight: 87.09 kg

DRUGS (1)
  1. PLUVICTO [Suspect]
     Active Substance: LUTETIUM LU-177 VIPIVOTIDE TETRAXETAN
     Indication: Prostate cancer
     Dosage: UNK, VIAL 8
     Route: 042
     Dates: start: 20231208, end: 20240228

REACTIONS (5)
  - Multiple organ dysfunction syndrome [Fatal]
  - Haemorrhage intracranial [Unknown]
  - Traumatic liver injury [Unknown]
  - Fall [Unknown]
  - General physical health deterioration [Unknown]

NARRATIVE: CASE EVENT DATE: 20240401
